FAERS Safety Report 9656738 (Version 1)
Quarter: 2013Q4

REPORT INFORMATION
  Report Type: Spontaneous
  Country: US (occurrence: None)
  Receive Date: 20131029
  Receipt Date: 20131029
  Transmission Date: 20140711
  Serious: Yes (Other)
  Sender: FDA-Public Use
  Company Number: None

PATIENT
  Age: 28 Year
  Sex: Male

DRUGS (1)
  1. MIRTAZAPINE, 15 MG, AUROBINDO [Suspect]
     Dosage: BEDTIME
     Route: 048

REACTIONS (1)
  - Gingival bleeding [None]
